FAERS Safety Report 10524610 (Version 1)
Quarter: 2014Q4

REPORT INFORMATION
  Report Type: Spontaneous
  Country: GB (occurrence: GB)
  Receive Date: 20141017
  Receipt Date: 20141017
  Transmission Date: 20150528
  Serious: Yes (Other)
  Sender: FDA-Public Use
  Company Number: GB-WATSON-2014-21949

PATIENT
  Age: 71 Year
  Sex: Male
  Weight: 89 kg

DRUGS (2)
  1. RAMIPRIL (UNKNOWN) [Suspect]
     Active Substance: RAMIPRIL
     Indication: HYPERTENSION
     Dosage: 2.5 MG, UNKNOWN
     Route: 048
     Dates: end: 20140918
  2. LERCANIDIPINE (UNKNOWN) [Suspect]
     Active Substance: LERCANIDIPINE
     Indication: HYPERTENSION
     Dosage: 10 MG, UNKNOWN
     Route: 048
     Dates: start: 20140806, end: 20140829

REACTIONS (2)
  - Rash [Recovering/Resolving]
  - Angioedema [Recovering/Resolving]

NARRATIVE: CASE EVENT DATE: 20140806
